FAERS Safety Report 13274686 (Version 1)
Quarter: 2017Q1

REPORT INFORMATION
  Report Type: Spontaneous
  Country: DE (occurrence: DE)
  Receive Date: 20170227
  Receipt Date: 20170227
  Transmission Date: 20170428
  Serious: Yes (Life-Threatening)
  Sender: FDA-Public Use
  Company Number: GXKR2017DE001287

PATIENT
  Sex: Female

DRUGS (1)
  1. MOMETAHEXAL [Suspect]
     Active Substance: MOMETASONE
     Indication: SEASONAL ALLERGY
     Route: 045

REACTIONS (4)
  - Headache [Unknown]
  - Abdominal pain upper [Unknown]
  - Bronchospasm [Unknown]
  - Dyspnoea [Unknown]
